FAERS Safety Report 9080973 (Version 1)
Quarter: 2013Q1

REPORT INFORMATION
  Report Type: Report from Study
  Country: US (occurrence: US)
  Receive Date: 20130130
  Receipt Date: 20130130
  Transmission Date: 20140127
  Serious: No
  Sender: FDA-Public Use
  Company Number: US-ABBOTT-12P-163-0962223-00

PATIENT
  Age: 42 Year
  Sex: Female

DRUGS (16)
  1. HUMIRA 40 MG/0.8 ML PEN [Suspect]
     Indication: CROHN^S DISEASE
     Dates: start: 20120627
  2. PROZAC [Concomitant]
     Indication: DEPRESSION
     Dosage: 40MG DAILY
  3. ABILIFY [Concomitant]
     Indication: DEPRESSION
     Dosage: 10MG DAILY
  4. XANAX [Concomitant]
     Indication: ANXIETY
  5. RITALIN [Concomitant]
     Indication: ATTENTION DEFICIT/HYPERACTIVITY DISORDER
  6. REMERON [Concomitant]
     Indication: DEPRESSION
     Dosage: AT BEDTIME
  7. ENTOCORT [Concomitant]
     Indication: PRODUCT USED FOR UNKNOWN INDICATION
     Dosage: 6MG = 2 PILLS DAILY
  8. PENTASA [Concomitant]
     Indication: PRODUCT USED FOR UNKNOWN INDICATION
  9. LASIX [Concomitant]
     Indication: PRODUCT USED FOR UNKNOWN INDICATION
  10. OXYCODONE [Concomitant]
     Indication: PAIN
  11. OXYCODONE [Concomitant]
     Indication: BREAKTHROUGH PAIN
     Dosage: 3 TIMES A DAY AS NEEDED
  12. LYRICA [Concomitant]
     Indication: PAIN
  13. NEURONTIN [Concomitant]
     Indication: PAIN
  14. POTASSIUM [Concomitant]
     Indication: PRODUCT USED FOR UNKNOWN INDICATION
     Dosage: 10MG DAILY
  15. ZANAFLEX [Concomitant]
     Indication: PRODUCT USED FOR UNKNOWN INDICATION
  16. PROMETHAZINE [Concomitant]
     Indication: NAUSEA
     Dosage: 4 TIMES A DAY AS NEEDED

REACTIONS (2)
  - Nausea [Recovering/Resolving]
  - Vomiting [Unknown]
